FAERS Safety Report 9434456 (Version 1)
Quarter: 2013Q3

REPORT INFORMATION
  Report Type: Spontaneous
  Country: JP (occurrence: None)
  Receive Date: 20130726
  Receipt Date: 20130726
  Transmission Date: 20140515
  Serious: Yes (Hospitalization, Other)
  Sender: FDA-Public Use
  Company Number: DSA_57418_2012

PATIENT
  Age: 65 Year
  Sex: Female
  Weight: 63.5 kg

DRUGS (8)
  1. MACUGEN [Suspect]
     Indication: CHOROIDAL NEOVASCULARISATION
     Route: 031
     Dates: start: 20091125
  2. HYALEIN (HYALURONATE SODIUM) (HYALURONATE SODIUM) [Concomitant]
  3. TARIVID (OFLOXACIN) (OFLOXACIN) [Concomitant]
  4. ARTIFICIAL TEARS (ARTIFICIAL TEARS) (NULL) [Concomitant]
  5. BLOPRESS (CANDESARTAN CILEXETIL) (CANDESARTAN CILEXETIL) [Concomitant]
  6. ARTIST (CARVEDILOL) (CARVEDILOL) [Concomitant]
  7. NORVASC (AMLODIPINE BESILATE) (AMLODIPINE BESILATE) [Concomitant]
  8. ADONA (CARBAZOCHROME SODIUM SULFONATE) (CARBAZOCHROME SODIUM SULFONATE) [Concomitant]

REACTIONS (4)
  - Loss of consciousness [None]
  - Malaise [None]
  - Ischaemia [None]
  - Nuclear magnetic resonance imaging brain abnormal [None]
